FAERS Safety Report 13965524 (Version 1)
Quarter: 2017Q3

REPORT INFORMATION
  Report Type: Spontaneous
  Country: JP (occurrence: JP)
  Receive Date: 20170913
  Receipt Date: 20170913
  Transmission Date: 20171128
  Serious: Yes (Other)
  Sender: FDA-Public Use
  Company Number: JP-JNJFOC-20170911082

PATIENT
  Age: 83 Year
  Sex: Female

DRUGS (2)
  1. TRAMAL [Suspect]
     Active Substance: TRAMADOL
     Indication: LUMBAR SPINAL STENOSIS
     Route: 048
     Dates: start: 201612
  2. ELDECALCITOL [Concomitant]
     Active Substance: ELDECALCITOL
     Indication: PRODUCT USED FOR UNKNOWN INDICATION
     Route: 065

REACTIONS (2)
  - Anuria [Unknown]
  - Decreased appetite [Unknown]

NARRATIVE: CASE EVENT DATE: 201708
